FAERS Safety Report 10196116 (Version 1)
Quarter: 2014Q2

REPORT INFORMATION
  Report Type: Spontaneous
  Country: US (occurrence: US)
  Receive Date: 20140527
  Receipt Date: 20140527
  Transmission Date: 20141212
  Serious: Yes (Hospitalization)
  Sender: FDA-Public Use
  Company Number: US-ELI_LILLY_AND_COMPANY-US201405004883

PATIENT
  Sex: Female

DRUGS (10)
  1. HUMALOG LISPRO [Suspect]
     Indication: TYPE 2 DIABETES MELLITUS
     Dosage: UNK
     Route: 065
     Dates: start: 1996
  2. LANTUS [Concomitant]
  3. CRESTOR [Concomitant]
  4. SYNTHROID [Concomitant]
  5. MAGNESIUM [Concomitant]
  6. ZINC [Concomitant]
  7. CALCIUM [Concomitant]
  8. BABY ASPIRIN [Concomitant]
  9. IBUPROFEN [Concomitant]
  10. NAPROXEN [Concomitant]

REACTIONS (5)
  - Lower limb fracture [Unknown]
  - Device breakage [Unknown]
  - Fall [Unknown]
  - Lumbar spinal stenosis [Unknown]
  - Osteoarthritis [Unknown]
